FAERS Safety Report 16115691 (Version 1)
Quarter: 2019Q1

REPORT INFORMATION
  Report Type: Report from Study
  Country: None (occurrence: DE)
  Receive Date: 20190326
  Receipt Date: 20190326
  Transmission Date: 20190418
  Serious: Yes (Hospitalization, Other)
  Sender: FDA-Public Use
  Company Number: DE-ABBVIE-19K-062-2711518-00

PATIENT
  Sex: Male
  Weight: 125 kg

DRUGS (4)
  1. HUMIRA [Suspect]
     Active Substance: ADALIMUMAB
     Indication: PRODUCT USED FOR UNKNOWN INDICATION
     Route: 058
  2. CLOPIDOGREL [Concomitant]
     Active Substance: CLOPIDOGREL BISULFATE
     Indication: MYOCARDIAL INFARCTION
     Route: 048
  3. AMPICILLIN [Concomitant]
     Active Substance: AMPICILLIN
     Indication: PRODUCT USED FOR UNKNOWN INDICATION
     Route: 048
  4. METFORMIN [Concomitant]
     Active Substance: METFORMIN HYDROCHLORIDE
     Indication: TYPE 2 DIABETES MELLITUS
     Route: 048

REACTIONS (10)
  - Finger deformity [Not Recovered/Not Resolved]
  - Limb mass [Not Recovered/Not Resolved]
  - Intervertebral disc protrusion [Not Recovered/Not Resolved]
  - Tendon rupture [Recovering/Resolving]
  - Listless [Not Recovered/Not Resolved]
  - Fall [Unknown]
  - Arthralgia [Recovering/Resolving]
  - Tendon disorder [Unknown]
  - Depression [Not Recovered/Not Resolved]
  - Cervical vertebral fracture [Recovering/Resolving]

NARRATIVE: CASE EVENT DATE: 2015
